FAERS Safety Report 22251418 (Version 1)
Quarter: 2023Q2

REPORT INFORMATION
  Report Type: Spontaneous
  Country: US (occurrence: None)
  Receive Date: 20230425
  Receipt Date: 20230425
  Transmission Date: 20230722
  Serious: Yes (Other)
  Sender: FDA-Public Use
  Company Number: None

PATIENT
  Age: 23 Year
  Sex: Female
  Weight: 120 kg

DRUGS (1)
  1. ERYTHROMYCIN [Suspect]
     Active Substance: ERYTHROMYCIN
     Indication: Hordeolum
     Dosage: OTHER QUANTITY : 1 1;?FREQUENCY : 4 TIMES A DAY;?
     Route: 047
     Dates: start: 20230213, end: 20230419

REACTIONS (1)
  - Eye colour change [None]

NARRATIVE: CASE EVENT DATE: 20230221
